FAERS Safety Report 21767703 (Version 2)
Quarter: 2023Q1

REPORT INFORMATION
  Report Type: Spontaneous
  Country: IT (occurrence: IT)
  Receive Date: 20221222
  Receipt Date: 20230111
  Transmission Date: 20230418
  Serious: Yes (Hospitalization, Other)
  Sender: FDA-Public Use
  Company Number: IT-TEVA-2022-IT-2838425

PATIENT
  Age: 66 Year
  Sex: Male

DRUGS (14)
  1. LENALIDOMIDE [Suspect]
     Active Substance: LENALIDOMIDE
     Indication: Glomerulonephritis proliferative
     Dosage: D-RD REGIMEN
     Route: 065
  2. DARATUMUMAB [Suspect]
     Active Substance: DARATUMUMAB
     Indication: Glomerulonephritis proliferative
     Dosage: D-RD REGIMEN; SCHEDULED FOR 8 WEEKS , 16 MG/KG  ONCE A WEEK FOR 8 WEEKS
     Route: 042
  3. DARATUMUMAB [Suspect]
     Active Substance: DARATUMUMAB
     Indication: Monoclonal gammopathy
  4. DEXAMETHASONE [Suspect]
     Active Substance: DEXAMETHASONE
     Indication: Glomerulonephritis proliferative
     Dosage: D-RD REGIMEN , 20 MG
     Route: 048
  5. DEXAMETHASONE [Suspect]
     Active Substance: DEXAMETHASONE
     Dosage: AS PART OF CYBORD REGIMEN
     Route: 065
  6. GANCICLOVIR [Suspect]
     Active Substance: GANCICLOVIR
     Indication: Cytomegalovirus infection
     Dosage: 1.25 MG/KG/DOSE 3 TIMES WEEKLY
     Route: 042
  7. CYCLOPHOSPHAMIDE [Suspect]
     Active Substance: CYCLOPHOSPHAMIDE
     Indication: Renal failure
     Dosage: 500MG ONCE EVERY 2 WEEKS
     Route: 042
  8. CYCLOPHOSPHAMIDE [Suspect]
     Active Substance: CYCLOPHOSPHAMIDE
     Indication: Glomerulonephritis proliferative
     Dosage: ON DAYS 1, 8, 15 AS PART OF CYBORD REGIMEN , 350 MG
     Route: 065
  9. BORTEZOMIB [Concomitant]
     Active Substance: BORTEZOMIB
     Indication: Glomerulonephritis proliferative
     Dosage: ON DAYS 1, 8, 15, 22 AS PART OF CYBORD REGIMEN , 1.3 MG/M2
     Route: 058
  10. ACYCLOVIR [Concomitant]
     Active Substance: ACYCLOVIR
     Indication: Prophylaxis
     Route: 065
  11. FLUCONAZOLE [Concomitant]
     Active Substance: FLUCONAZOLE
     Indication: Prophylaxis
     Route: 065
  12. METHYLPREDNISOLONE [Concomitant]
     Active Substance: METHYLPREDNISOLONE
     Indication: Renal failure
     Dosage: 125/DAYS FOR DAYS
     Route: 042
  13. PREDNISONE [Concomitant]
     Active Substance: PREDNISONE
     Indication: Renal failure
     Dosage: 50 MG
     Route: 048
  14. ANAGRELIDE [Concomitant]
     Active Substance: ANAGRELIDE
     Indication: Thrombocytosis
     Route: 065

REACTIONS (6)
  - Neutropenia [Unknown]
  - Pneumonia [Unknown]
  - Aspergillus infection [Recovering/Resolving]
  - Acinetobacter infection [Unknown]
  - Cytomegalovirus infection [Unknown]
  - Drug ineffective [Unknown]
